FAERS Safety Report 19120621 (Version 1)
Quarter: 2021Q2

REPORT INFORMATION
  Report Type: Spontaneous
  Country: US (occurrence: US)
  Receive Date: 20210411
  Receipt Date: 20210411
  Transmission Date: 20210717
  Serious: No
  Sender: FDA-Public Use
  Company Number: None

PATIENT
  Age: 5 Year
  Sex: Female
  Weight: 17.1 kg

DRUGS (2)
  1. CHILDREN^S VITAMINS [Concomitant]
  2. BLUE LIZARD KIDS SUNSCREEN [Suspect]
     Active Substance: OCTOCRYLENE\ZINC OXIDE
     Indication: PROPHYLAXIS AGAINST SOLAR RADIATION
     Route: 061
     Dates: start: 20210408, end: 20210409

REACTIONS (2)
  - Rash [None]
  - Application site rash [None]

NARRATIVE: CASE EVENT DATE: 20210409
